FAERS Safety Report 20351958 (Version 3)
Quarter: 2022Q1

REPORT INFORMATION
  Report Type: Spontaneous
  Country: JP (occurrence: JP)
  Receive Date: 20220119
  Receipt Date: 20220201
  Transmission Date: 20220424
  Serious: Yes (Death)
  Sender: FDA-Public Use
  Company Number: JP-CELGENE-JPN-20220104531

PATIENT
  Age: 72 Year
  Sex: Male

DRUGS (5)
  1. VIDAZA [Suspect]
     Active Substance: AZACITIDINE
     Indication: Acute myeloid leukaemia recurrent
     Dosage: 1-7TH CYCLE
     Route: 041
     Dates: start: 20180227, end: 2018
  2. VIDAZA [Suspect]
     Active Substance: AZACITIDINE
     Indication: Off label use
     Dosage: 8TH CYCLE
     Route: 041
     Dates: start: 20181001, end: 20181109
  3. CYTARABINE [Suspect]
     Active Substance: CYTARABINE
     Indication: Acute myeloid leukaemia recurrent
     Dosage: 20 MILLIGRAM
     Route: 058
     Dates: start: 20181109
  4. CYTARABINE [Suspect]
     Active Substance: CYTARABINE
     Indication: Off label use
     Dosage: 20 MILLIGRAM
     Route: 058
     Dates: start: 20190122, end: 2019
  5. CYTARABINE [Suspect]
     Active Substance: CYTARABINE
     Dosage: 20 MILLIGRAM
     Route: 058
     Dates: start: 20190820, end: 20191004

REACTIONS (2)
  - Death [Fatal]
  - Therapeutic product effect incomplete [Fatal]

NARRATIVE: CASE EVENT DATE: 20181029
